FAERS Safety Report 23683323 (Version 2)
Quarter: 2024Q3

REPORT INFORMATION
  Report Type: Spontaneous
  Country: US (occurrence: US)
  Receive Date: 20240328
  Receipt Date: 20240830
  Transmission Date: 20241016
  Serious: Yes (Other)
  Sender: ELI LILLY AND CO
  Company Number: US-ELI_LILLY_AND_COMPANY-US202403011338

PATIENT
  Age: 76 Year
  Sex: Female
  Weight: 59.1 kg

DRUGS (5)
  1. RETEVMO [Interacting]
     Active Substance: SELPERCATINIB
     Indication: Lung adenocarcinoma stage IV
     Dosage: 160 MG, BID
     Route: 048
     Dates: start: 20240122, end: 20240311
  2. RETEVMO [Interacting]
     Active Substance: SELPERCATINIB
     Dosage: 80MG, BID
     Route: 048
     Dates: start: 20240409
  3. ZOLOFT [Interacting]
     Active Substance: SERTRALINE HYDROCHLORIDE
     Indication: Depression
     Dosage: 100 MG, DAILY
     Route: 048
  4. ZOLOFT [Interacting]
     Active Substance: SERTRALINE HYDROCHLORIDE
     Indication: Anxiety
     Dosage: 50 MG, DAILY (TAPERING OFF TO DISCONTINUE)
     Route: 048
  5. ARMOUR THYROID [Concomitant]
     Active Substance: THYROID, PORCINE
     Indication: Hypothyroidism
     Dosage: 30 MG, DAILY

REACTIONS (3)
  - Bradycardia [Recovering/Resolving]
  - Drug interaction [Recovering/Resolving]
  - Electrocardiogram QT prolonged [Recovering/Resolving]
